FAERS Safety Report 8758742 (Version 1)
Quarter: 2012Q4

REPORT INFORMATION
  Report Type: Spontaneous
  Country: US (occurrence: None)
  Receive Date: 20120828
  Receipt Date: 20120828
  Transmission Date: 20130627
  Serious: Yes (Hospitalization)
  Sender: FDA-Public Use
  Company Number: None

PATIENT
  Sex: Male
  Weight: 75.2 kg

DRUGS (4)
  1. DEXAMETHASONE [Suspect]
  2. MERCAPTOPURINE [Suspect]
  3. METHOTREXATE [Suspect]
  4. VINCRISTINE SULFATE [Suspect]

REACTIONS (4)
  - Headache [None]
  - Musculoskeletal stiffness [None]
  - Diarrhoea [None]
  - Neck pain [None]
